FAERS Safety Report 9093198 (Version 1)
Quarter: 2013Q1

REPORT INFORMATION
  Report Type: Spontaneous
  Country: US (occurrence: US)
  Receive Date: 20130201
  Receipt Date: 20130201
  Transmission Date: 20140127
  Serious: Yes (Hospitalization, Other)
  Sender: FDA-Public Use
  Company Number: US-ROCHE-1183038

PATIENT
  Sex: Female

DRUGS (1)
  1. LUCENTIS [Suspect]
     Indication: PRODUCT USED FOR UNKNOWN INDICATION
     Route: 065

REACTIONS (10)
  - Knee operation [Unknown]
  - Asthenia [Unknown]
  - Gastric perforation [Unknown]
  - Diarrhoea [Unknown]
  - Dizziness [Unknown]
  - Hypertension [Unknown]
  - Blood test abnormal [Unknown]
  - Influenza [Unknown]
  - Nasopharyngitis [Unknown]
  - Cystitis [Unknown]
